FAERS Safety Report 13543751 (Version 1)
Quarter: 2017Q2

REPORT INFORMATION
  Report Type: Spontaneous
  Country: FR (occurrence: FR)
  Receive Date: 20170515
  Receipt Date: 20170515
  Transmission Date: 20170830
  Serious: Yes (Other)
  Sender: FDA-Public Use
  Company Number: FR-SUN PHARMACEUTICAL INDUSTRIES LTD-2015R1-95694

PATIENT
  Age: 80 Year
  Sex: Female

DRUGS (2)
  1. DISULONE [Concomitant]
     Active Substance: DAPSONE\FERROUS OXALATE
     Indication: TEMPORAL ARTERITIS
     Dosage: UNK
     Route: 065
     Dates: start: 201109
  2. PREDNISONE. [Suspect]
     Active Substance: PREDNISONE
     Indication: TEMPORAL ARTERITIS
     Dosage: 40 MG, DAILY
     Route: 065

REACTIONS (1)
  - Drug ineffective [Unknown]
